FAERS Safety Report 8130312-X (Version None)
Quarter: 2012Q1

REPORT INFORMATION
  Report Type: 
  Country: None (occurrence: None)
  Receive Date: 20120210
  Receipt Date: 20120207
  Transmission Date: 20120608
  Serious: Yes (Hospitalization, Other)
  Sender: FDA-Public Use
  Company Number: PHHY2011US24928

PATIENT
  Sex: Female
  Weight: 81.6 kg

DRUGS (17)
  1. EXJADE [Suspect]
     Indication: IRON OVERLOAD
     Dosage: 1500 MG, DAILY
     Route: 048
     Dates: start: 20110321
  2. AZACITIDINE [Concomitant]
     Dosage: UNK
  3. TRIAMCINOLONE [Concomitant]
     Dosage: UNK
  4. EXJADE [Suspect]
     Indication: MYELODYSPLASTIC SYNDROME
     Dosage: 1500 MG, DAILY
     Route: 048
     Dates: start: 20110316
  5. CALCIUM CARBONATE [Concomitant]
     Dosage: 1 DF, QD
     Route: 048
  6. PSYLLIUM [Concomitant]
     Dosage: 1 DF, BID
  7. GLUCOTROL [Concomitant]
     Dosage: 1 DF, QD
     Route: 048
  8. ESTROGENS [Concomitant]
     Dosage: 1 G,
     Route: 067
  9. CLOBETASOL [Concomitant]
     Dosage: 1 DF, BID
     Route: 061
  10. METOCLOPRAMIDE [Concomitant]
     Indication: PALPITATIONS
     Dosage: 1 DF, QD
     Route: 048
  11. EXJADE [Suspect]
     Dosage: 1500 MG, DAILY
     Route: 048
     Dates: start: 20110401, end: 20120123
  12. OMEPRAZOLE [Concomitant]
     Dosage: 1 DF, QD
     Route: 048
  13. METFORMIN HCL [Concomitant]
     Dosage: 850 MG, QD
  14. HYDROXYZINE HCL [Concomitant]
     Dosage: 1 DF, UNK
  15. METFORMIN HCL [Concomitant]
     Dosage: 500 MG, QD
     Route: 048
  16. EXJADE [Suspect]
     Dosage: 1500 MG, DAILY
     Route: 048
     Dates: start: 20120130, end: 20120206
  17. MULTI-VITAMINS [Concomitant]
     Dosage: UNK
     Route: 048

REACTIONS (14)
  - DIARRHOEA [None]
  - OEDEMA PERIPHERAL [None]
  - FOOD POISONING [None]
  - PYREXIA [None]
  - FATIGUE [None]
  - ABDOMINAL DISCOMFORT [None]
  - ABDOMINAL PAIN [None]
  - TENDERNESS [None]
  - ANAEMIA [None]
  - HEPATOMEGALY [None]
  - BLOOD PRESSURE DIASTOLIC DECREASED [None]
  - PALPITATIONS [None]
  - THROMBOCYTOPENIA [None]
  - NAUSEA [None]
